FAERS Safety Report 7274500-3 (Version None)
Quarter: 2011Q1

REPORT INFORMATION
  Report Type: 
  Country: None (occurrence: None)
  Receive Date: 20110201
  Receipt Date: 20110201
  Transmission Date: 20110831
  Serious: Yes (Hospitalization)
  Sender: FDA-Public Use
  Company Number: None

PATIENT
  Sex: Female
  Weight: 95.7 kg

DRUGS (19)
  1. FLEXERIL [Concomitant]
  2. NEURONTIN [Concomitant]
  3. LOPID [Concomitant]
  4. ZOFRAN [Concomitant]
  5. BLIPIZIDE [Concomitant]
  6. TRAMADOL [Concomitant]
  7. DITROPAN [Concomitant]
  8. ZOCOR [Concomitant]
  9. IXABEPILONE 32MG/M2 ONCE EVERY 21 DAYS [Suspect]
     Indication: BREAST CANCER METASTATIC
     Dosage: IV EVERY 21 DAYS
     Route: 042
     Dates: start: 20101001, end: 20110112
  10. LOTENSIN [Concomitant]
  11. NORVAXC [Concomitant]
  12. PEPCID AC [Concomitant]
  13. GLUCOPHAGE [Concomitant]
  14. LASIX [Concomitant]
  15. ZOLPIDEM [Concomitant]
  16. ASPIRIN [Concomitant]
  17. VORINOSTAT 300MG DAILY DAYS 1-14 OF EACH CYCLE [Suspect]
     Indication: BREAST CANCER METASTATIC
     Dosage: PO DAYS 1-14 EACH CYCLE
     Dates: start: 20100101, end: 20110112
  18. NEULASTA [Concomitant]
  19. VITAMINS C D E [Concomitant]

REACTIONS (3)
  - WOUND COMPLICATION [None]
  - IMPAIRED HEALING [None]
  - WOUND SECRETION [None]
